FAERS Safety Report 20626685 (Version 3)
Quarter: 2022Q4

REPORT INFORMATION
  Report Type: Spontaneous
  Country: US (occurrence: US)
  Receive Date: 20220323
  Receipt Date: 20221014
  Transmission Date: 20230112
  Serious: Yes (Other)
  Sender: FDA-Public Use
  Company Number: US-MYLANLABS-2022M1021619

PATIENT
  Age: 3 Month
  Sex: Female

DRUGS (5)
  1. OCTREOTIDE [Suspect]
     Active Substance: OCTREOTIDE
     Indication: Chylothorax
     Dosage: UNK
     Route: 065
  2. OCTREOTIDE [Suspect]
     Active Substance: OCTREOTIDE
     Indication: Ascites
  3. TRAMETINIB [Concomitant]
     Active Substance: TRAMETINIB
     Indication: Chylothorax
     Dosage: 0.125 MILLIGRAM; 0.125 MG (1/4 TABLET, ~0.026 MG/KG) WAS CRUSHED, RESUSPENDED AND...
     Route: 048
  4. TRAMETINIB [Concomitant]
     Active Substance: TRAMETINIB
     Dosage: 0.125 MILLIGRAM, Q36H; 0.125 MG (1/4 TABLET, ~0.026 MG/KG) WAS CRUSHED, RESUSPENDED AND...
     Route: 048
  5. TRAMETINIB [Concomitant]
     Active Substance: TRAMETINIB
     Dosage: 0.125 MILLIGRAM, QD; 0.125 MG (1/4 TABLET, ~0.026 MG/KG) WAS CRUSHED, RESUSPENDED AND...
     Route: 048

REACTIONS (2)
  - Drug ineffective for unapproved indication [Unknown]
  - Off label use [Unknown]
